FAERS Safety Report 7576880-8 (Version None)
Quarter: 2011Q2

REPORT INFORMATION
  Report Type: 
  Country: None (occurrence: None)
  Receive Date: 20110628
  Receipt Date: 20110624
  Transmission Date: 20111010
  Serious: Yes (Life-Threatening, Other)
  Sender: FDA-Public Use
  Company Number: US-JNJFOC-20110503394

PATIENT
  Age: 68 Year
  Sex: Male

DRUGS (5)
  1. STELARA [Suspect]
     Indication: PSORIASIS
     Route: 058
     Dates: start: 20110125
  2. OCTREOTIDE ACETATE [Concomitant]
     Indication: CARCINOID TUMOUR
  3. ALLOPURINOL [Concomitant]
     Indication: GOUT
  4. AMLODIPINE [Concomitant]
     Indication: RAYNAUD'S PHENOMENON
  5. METOPROLOL TARTRATE [Concomitant]

REACTIONS (2)
  - SCLERODERMA [None]
  - RAYNAUD'S PHENOMENON [None]
